FAERS Safety Report 7050405-8 (Version None)
Quarter: 2010Q4

REPORT INFORMATION
  Report Type: 
  Country: None (occurrence: None)
  Receive Date: 20101018
  Receipt Date: 20101006
  Transmission Date: 20110411
  Serious: Yes (Other)
  Sender: FDA-Public Use
  Company Number: US-PFIZER INC-2010076595

PATIENT
  Sex: Male
  Weight: 73 kg

DRUGS (3)
  1. GLUCOTROL XL [Suspect]
     Indication: TYPE 2 DIABETES MELLITUS
     Dosage: 5 MG, 1X/DAY
     Route: 048
     Dates: start: 20100302
  2. METFORMIN [Concomitant]
     Indication: TYPE 2 DIABETES MELLITUS
     Dosage: 1000 MG, 2X/DAY
     Route: 048
  3. LORAZEPAM [Concomitant]
     Indication: STRESS
     Dosage: 2 MG, 1X/DAY
     Route: 048

REACTIONS (1)
  - POLYMYALGIA RHEUMATICA [None]
